FAERS Safety Report 9893639 (Version 4)
Quarter: 2016Q1

REPORT INFORMATION
  Report Type: Spontaneous
  Country: US (occurrence: US)
  Receive Date: 20140213
  Receipt Date: 20160314
  Transmission Date: 20160526
  Serious: No
  Sender: FDA-Public Use
  Company Number: US-BAYER-2014-020217

PATIENT
  Age: 41 Year
  Sex: Female

DRUGS (1)
  1. MIRENA [Suspect]
     Active Substance: LEVONORGESTREL
     Indication: CONTRACEPTION
     Dosage: UNK
     Route: 015
     Dates: start: 2013, end: 2013

REACTIONS (4)
  - Device difficult to use [None]
  - Procedural pain [None]
  - Pregnancy with contraceptive device [Recovered/Resolved]
  - Medication error [None]

NARRATIVE: CASE EVENT DATE: 2013
